FAERS Safety Report 8150044 (Version 2)
Quarter: 2013Q1

REPORT INFORMATION
  Report Type: Spontaneous
  Country: JP (occurrence: JP)
  Receive Date: 20110922
  Receipt Date: 20130314
  Transmission Date: 20140127
  Serious: Yes (Hospitalization)
  Sender: FDA-Public Use
  Company Number: JP-GLAXOSMITHKLINE-B0747909A

PATIENT
  Age: 29 Year
  Sex: Female

DRUGS (7)
  1. LAMICTAL [Suspect]
     Indication: BIPOLAR DISORDER
     Dosage: 25MG PER DAY
     Route: 048
     Dates: start: 201107, end: 201108
  2. LAMICTAL [Suspect]
     Indication: BIPOLAR DISORDER
     Dosage: 25MG PER DAY
     Route: 048
     Dates: start: 201108, end: 20110822
  3. DEPAKENE-R [Concomitant]
     Indication: BIPOLAR DISORDER
     Route: 048
  4. LIMAS [Concomitant]
     Indication: BIPOLAR DISORDER
     Dosage: 400MG TWICE PER DAY
     Route: 048
  5. ROHYPNOL [Concomitant]
     Indication: BIPOLAR DISORDER
     Dosage: 1MG PER DAY
     Route: 048
  6. MUCOSTA [Concomitant]
     Indication: BIPOLAR DISORDER
     Dosage: 100MG TWICE PER DAY
     Route: 048
  7. REMERON [Concomitant]
     Indication: BIPOLAR DISORDER
     Dosage: 15MG PER DAY
     Route: 048

REACTIONS (12)
  - Drug reaction with eosinophilia and systemic symptoms [Recovering/Resolving]
  - Erythema [Unknown]
  - Pruritus [Unknown]
  - Lymphadenopathy [Unknown]
  - Flushing [Unknown]
  - Swelling face [Unknown]
  - Erythema [Unknown]
  - Erythema [Unknown]
  - Rash [Recovering/Resolving]
  - Liver disorder [Unknown]
  - Blister [Unknown]
  - Skin degenerative disorder [Unknown]
